FAERS Safety Report 4883526-6 (Version None)
Quarter: 2006Q1

REPORT INFORMATION
  Report Type: 
  Country: None (occurrence: None)
  Receive Date: 20060118
  Receipt Date: 20050808
  Transmission Date: 20060701
  Serious: Yes (Hospitalization)
  Sender: FDA-Public Use
  Company Number: US-MERCK-0508USA01535

PATIENT
  Age: 57 Year
  Sex: Male
  Weight: 100 kg

DRUGS (2)
  1. VIOXX [Suspect]
     Indication: BACK PAIN
     Route: 048
     Dates: start: 19991217, end: 20041004
  2. ASPIRIN [Concomitant]
     Route: 065

REACTIONS (18)
  - ACCELERATED HYPERTENSION [None]
  - ARTHRALGIA [None]
  - CEREBROVASCULAR ACCIDENT [None]
  - CHRONIC SINUSITIS [None]
  - FALL [None]
  - HYDROCELE [None]
  - INGUINAL HERNIA [None]
  - INJURY [None]
  - JOINT SWELLING [None]
  - NASAL SEPTUM DISORDER [None]
  - NASAL TURBINATE HYPERTROPHY [None]
  - OBSTRUCTIVE AIRWAYS DISORDER [None]
  - OSTEOARTHRITIS [None]
  - PAIN IN EXTREMITY [None]
  - SHOULDER PAIN [None]
  - SKIN LESION [None]
  - SYNCOPE [None]
  - VARICOSE VEIN RUPTURED [None]
